FAERS Safety Report 5031726-7 (Version None)
Quarter: 2006Q2

REPORT INFORMATION
  Report Type: 
  Country: None (occurrence: None)
  Receive Date: 20060616
  Receipt Date: 20060606
  Transmission Date: 20061013
  Serious: Yes (Other)
  Sender: FDA-Public Use
  Company Number: 163-20785-05050076

PATIENT
  Age: 70 Year
  Sex: Female

DRUGS (13)
  1. THALOMIDE(THALIDOMIDE) (100 MILLIGRAM, CAPSULES) [Suspect]
     Indication: MULTIPLE MYELOMA
     Dosage: SEE IMAGE
     Route: 048
     Dates: start: 20050418, end: 20050424
  2. THALOMIDE(THALIDOMIDE) (100 MILLIGRAM, CAPSULES) [Suspect]
     Indication: MULTIPLE MYELOMA
     Dosage: SEE IMAGE
     Route: 048
     Dates: end: 20060213
  3. THALOMIDE(THALIDOMIDE) (100 MILLIGRAM, CAPSULES) [Suspect]
     Indication: MULTIPLE MYELOMA
     Dosage: SEE IMAGE
     Route: 048
     Dates: start: 20050425
  4. CELEBREX [Concomitant]
  5. PERCOCET [Concomitant]
  6. ATENOLOL [Concomitant]
  7. COUMADIN [Concomitant]
  8. PHENERGAN (PROMETHAZINE HYDROCHLORIDE) [Concomitant]
  9. TRICOR [Concomitant]
  10. LANOXIN [Concomitant]
  11. DIGOXIN [Concomitant]
  12. OXYCONTIN [Concomitant]
  13. NEXIUM [Concomitant]

REACTIONS (16)
  - BALANCE DISORDER [None]
  - BRONCHOPNEUMONIA [None]
  - BURNING SENSATION [None]
  - DRUG INEFFECTIVE [None]
  - DYSGEUSIA [None]
  - DYSPHONIA [None]
  - HYPOAESTHESIA [None]
  - HYPOTHYROIDISM [None]
  - LARYNGITIS [None]
  - NASOPHARYNGITIS [None]
  - NAUSEA [None]
  - PARAESTHESIA [None]
  - THYROID DISORDER [None]
  - THYROID NEOPLASM [None]
  - TREMOR [None]
  - VOCAL CORD PARALYSIS [None]
